FAERS Safety Report 12784910 (Version 1)
Quarter: 2016Q3

REPORT INFORMATION
  Report Type: Spontaneous
  Country: US (occurrence: US)
  Receive Date: 20160927
  Receipt Date: 20160927
  Transmission Date: 20161109
  Serious: No
  Sender: FDA-Public Use
  Company Number: US-TALECRIS-GTI002995

PATIENT
  Age: 69 Year
  Sex: Female
  Weight: 83 kg

DRUGS (20)
  1. BEPREVE [Concomitant]
     Active Substance: BEPOTASTINE BESILATE
  2. LASIX [Concomitant]
     Active Substance: FUROSEMIDE
  3. TRIAMCINOLONE [Concomitant]
     Active Substance: TRIAMCINOLONE
  4. PROLASTIN-C [Suspect]
     Active Substance: .ALPHA.1-PROTEINASE INHIBITOR HUMAN
     Indication: ALPHA-1 ANTI-TRYPSIN DEFICIENCY
     Route: 042
     Dates: start: 20150209, end: 20150209
  5. TAMBOCOR [Concomitant]
     Active Substance: FLECAINIDE ACETATE
  6. ACIDOPHILUS [Concomitant]
     Active Substance: LACTOBACILLUS ACIDOPHILUS
  7. CLARINEX [Concomitant]
     Active Substance: DESLORATADINE
  8. DIOVAN [Concomitant]
     Active Substance: VALSARTAN
  9. CRESTOR [Concomitant]
     Active Substance: ROSUVASTATIN CALCIUM
  10. CARDIZEM [Concomitant]
     Active Substance: DILTIAZEM HYDROCHLORIDE
  11. FOSAMAX [Concomitant]
     Active Substance: ALENDRONATE SODIUM
  12. CALCIUM [Concomitant]
     Active Substance: CALCIUM
  13. NEXIUM [Concomitant]
     Active Substance: ESOMEPRAZOLE MAGNESIUM
  14. VITAMIN D [Concomitant]
     Active Substance: CHOLECALCIFEROL
  15. PROLASTIN-C [Suspect]
     Active Substance: .ALPHA.1-PROTEINASE INHIBITOR HUMAN
     Indication: ALPHA-1 ANTI-TRYPSIN DEFICIENCY
     Route: 042
     Dates: start: 20150203, end: 20150203
  16. SINGULAIR [Concomitant]
     Active Substance: MONTELUKAST SODIUM
  17. ALBUTEROL SULFATE. [Concomitant]
     Active Substance: ALBUTEROL SULFATE
  18. RIVAROXABAN [Concomitant]
     Active Substance: RIVAROXABAN
  19. FISH OIL [Concomitant]
     Active Substance: FISH OIL
  20. MULTIVITAMINS [Concomitant]
     Active Substance: VITAMINS

REACTIONS (2)
  - Peripheral coldness [Recovered/Resolved]
  - Fatigue [Recovered/Resolved]

NARRATIVE: CASE EVENT DATE: 20150203
